FAERS Safety Report 8227341-4 (Version None)
Quarter: 2012Q1

REPORT INFORMATION
  Report Type: 
  Country: None (occurrence: None)
  Receive Date: 20120322
  Receipt Date: 20120316
  Transmission Date: 20120608
  Serious: Yes (Other)
  Sender: FDA-Public Use
  Company Number: PHHY2011US06929

PATIENT
  Sex: Female

DRUGS (6)
  1. AFINITOR [Suspect]
     Indication: ASTROCYTOMA, LOW GRADE
     Dosage: 5 MG, QD
     Route: 048
     Dates: start: 20110108
  2. RAPAMUNE [Concomitant]
  3. DIASTAT [Concomitant]
  4. KEPPRA [Concomitant]
  5. VIMPAT [Concomitant]
     Dosage: 100 MG, IN THE AM
  6. VIMPAT [Concomitant]
     Dosage: 125 MG, IN THE PM

REACTIONS (20)
  - MALAISE [None]
  - ERYTHEMA [None]
  - SINUS HEADACHE [None]
  - UPPER RESPIRATORY TRACT INFECTION [None]
  - CONVULSION [None]
  - LETHARGY [None]
  - SCAB [None]
  - GASTROENTERITIS VIRAL [None]
  - SCRATCH [None]
  - RASH PRURITIC [None]
  - RASH [None]
  - INFANTILE SPASMS [None]
  - STARING [None]
  - PYREXIA [None]
  - HAND-FOOT-AND-MOUTH DISEASE [None]
  - FOLLICULITIS [None]
  - INFLUENZA LIKE ILLNESS [None]
  - ESCHERICHIA INFECTION [None]
  - SKIN ODOUR ABNORMAL [None]
  - DRY SKIN [None]
